FAERS Safety Report 24832528 (Version 1)
Quarter: 2025Q1

REPORT INFORMATION
  Report Type: Spontaneous
  Country: AR (occurrence: AR)
  Receive Date: 20250110
  Receipt Date: 20250110
  Transmission Date: 20250408
  Serious: Yes (Other)
  Sender: GUERBET
  Company Number: AR-GUERBET/TEMIS LOSTALO-AR-20250001

PATIENT
  Age: 72 Year
  Sex: Male

DRUGS (2)
  1. OPTIRAY 320 [Suspect]
     Active Substance: IOVERSOL
     Indication: Computerised tomogram thorax
     Route: 042
     Dates: start: 20241228, end: 20241228
  2. OPTIRAY 320 [Suspect]
     Active Substance: IOVERSOL
     Indication: Computerised tomogram abdomen

REACTIONS (1)
  - Syncope [Recovered/Resolved]

NARRATIVE: CASE EVENT DATE: 20241228
